FAERS Safety Report 5687365-8 (Version None)
Quarter: 2008Q1

REPORT INFORMATION
  Report Type: 
  Country: None (occurrence: None)
  Receive Date: 20080328
  Receipt Date: 20070511
  Transmission Date: 20080703
  Serious: Yes (Other)
  Sender: FDA-Public Use
  Company Number: US-BAYER-US-2007-013589

PATIENT
  Age: 38 Year
  Sex: Female
  Weight: 94 kg

DRUGS (3)
  1. MIRENA [Suspect]
     Indication: CONTRACEPTION
     Route: 015
     Dates: start: 20070321, end: 20070326
  2. TRAZODONE HCL [Concomitant]
     Route: 048
  3. KEPPRA [Concomitant]
     Indication: CONVULSION
     Route: 048

REACTIONS (3)
  - COMPLICATION OF DEVICE INSERTION [None]
  - PROCEDURAL PAIN [None]
  - UTERINE RUPTURE [None]
